FAERS Safety Report 23361487 (Version 2)
Quarter: 2024Q1

REPORT INFORMATION
  Report Type: Spontaneous
  Country: US (occurrence: US)
  Receive Date: 20240103
  Receipt Date: 20240122
  Transmission Date: 20240410
  Serious: No
  Sender: FDA-Public Use
  Company Number: US-BAYER-2023A186407

PATIENT
  Age: 31 Year
  Sex: Female

DRUGS (2)
  1. GADAVIST [Suspect]
     Active Substance: GADOBUTROL
     Indication: Magnetic resonance imaging
     Dosage: CONTRAST INJECTION
     Dates: start: 20231226, end: 20231226
  2. GADAVIST [Suspect]
     Active Substance: GADOBUTROL
     Indication: Uterine leiomyoma

REACTIONS (3)
  - Nausea [None]
  - Vomiting projectile [None]
  - Suspected product quality issue [None]

NARRATIVE: CASE EVENT DATE: 20231226
